FAERS Safety Report 4714824-4 (Version None)
Quarter: 2005Q3

REPORT INFORMATION
  Report Type: 
  Country: None (occurrence: None)
  Receive Date: 20050714
  Receipt Date: 20050714
  Transmission Date: 20060218
  Serious: Yes (Other)
  Sender: FDA-Public Use
  Company Number: None

PATIENT
  Sex: Female
  Weight: 57.7 kg

DRUGS (9)
  1. CYTOXAN [Suspect]
     Indication: BREAST CANCER
     Dosage: 1010MG
     Dates: start: 20050523
  2. ADRIAMYCIN PFS [Suspect]
     Dosage: 101 MG IV Q 14 DAYS FOUR CYCLES
     Route: 042
  3. PACLITAXEL [Suspect]
     Dosage: SEE IMAGE
  4. GEMCITABINE [Suspect]
     Dosage: SEE IMAGE
  5. ALPRAZOLAM [Concomitant]
  6. COMPAZINE [Concomitant]
  7. TOPEGUS [Concomitant]
  8. INTERFERON [Concomitant]
  9. NEXIUM [Concomitant]

REACTIONS (4)
  - DEPRESSION [None]
  - INTENTIONAL MISUSE [None]
  - SUICIDE ATTEMPT [None]
  - TREATMENT NONCOMPLIANCE [None]
